FAERS Safety Report 21923107 (Version 3)
Quarter: 2025Q3

REPORT INFORMATION
  Report Type: Spontaneous
  Country: EU (occurrence: EU)
  Receive Date: 20230129
  Receipt Date: 20250820
  Transmission Date: 20251020
  Serious: Yes (Congenital Anomaly, Other)
  Sender: AUROBINDO
  Company Number: EU-AFSSAPS-TS2023000045

PATIENT
  Sex: Male
  Weight: 2 kg

DRUGS (3)
  1. ATENOLOL [Suspect]
     Active Substance: ATENOLOL
     Indication: Tachycardia
     Dosage: 25 MILLIGRAM, ONCE A DAY
     Route: 064
     Dates: start: 20221216
  2. PROPRANOLOL [Suspect]
     Active Substance: PROPRANOLOL HYDROCHLORIDE
     Indication: Tachycardia
     Dosage: 20 MILLIGRAM, TWO TIMES A DAY
     Route: 064
     Dates: start: 20221216
  3. ESOMEPRAZOLE [Concomitant]
     Active Substance: ESOMEPRAZOLE
     Indication: Gastrooesophageal reflux disease
     Route: 064
     Dates: start: 20230106

REACTIONS (5)
  - Foetal growth restriction [Not Recovered/Not Resolved]
  - Bradycardia [Recovered/Resolved]
  - Low birth weight baby [Unknown]
  - Hypoglycaemia [Recovered/Resolved]
  - Foetal exposure during pregnancy [Unknown]

NARRATIVE: CASE EVENT DATE: 20230106
